FAERS Safety Report 5186569-0 (Version None)
Quarter: 2006Q4

REPORT INFORMATION
  Report Type: 
  Country: None (occurrence: None)
  Receive Date: 20061213
  Receipt Date: 20061201
  Transmission Date: 20070319
  Serious: Yes (Death)
  Sender: FDA-Public Use
  Company Number: 2006JP004651

PATIENT
  Age: 85 Year
  Sex: Female

DRUGS (12)
  1. PROGRAF [Suspect]
     Indication: RHEUMATOID ARTHRITIS
     Dosage: 2 MG, UID/QD, ORAL
     Route: 048
     Dates: start: 20060406
  2. PREDONINE           (PREDNISOLONE SODIUM SUCCINATE) [Concomitant]
  3. ALLOPURINOL TAB [Concomitant]
  4. BONALON (ALENDRONIC ACID) [Concomitant]
  5. RABEPRAZOLE SODIUM [Concomitant]
  6. FELTASE (ENZYMES NOS) [Concomitant]
  7. LAC B (LACTOBACILLUS BIFIDUS, LYOPHILIZED) [Concomitant]
  8. FERROMIA (FERROUS CITRATE) [Concomitant]
  9. NIVADIL (NILVADIPINE) [Concomitant]
  10. MEXITIL [Concomitant]
  11. LEVOTHYROXINE SODIUM [Concomitant]
  12. DIART   (AZOSEMIDE) [Concomitant]

REACTIONS (12)
  - ABASIA [None]
  - AXILLARY PAIN [None]
  - CANDIDIASIS [None]
  - DIARRHOEA [None]
  - DIZZINESS [None]
  - ENTEROBACTER INFECTION [None]
  - INFECTION IN AN IMMUNOCOMPROMISED HOST [None]
  - KLEBSIELLA INFECTION [None]
  - PAIN [None]
  - PNEUMONIA [None]
  - RENAL FAILURE [None]
  - SPUTUM CULTURE POSITIVE [None]
